FAERS Safety Report 15889459 (Version 2)
Quarter: 2019Q1

REPORT INFORMATION
  Report Type: Spontaneous
  Country: JP (occurrence: JP)
  Receive Date: 20190130
  Receipt Date: 20190214
  Transmission Date: 20190417
  Serious: Yes (Other)
  Sender: FDA-Public Use
  Company Number: JP-ROCHE-2254223

PATIENT
  Age: 79 Year
  Sex: Female

DRUGS (1)
  1. XOFLUZA [Suspect]
     Active Substance: BALOXAVIR MARBOXIL
     Indication: INFLUENZA
     Route: 048
     Dates: start: 20190117, end: 20190117

REACTIONS (3)
  - Abdominal pain [Recovering/Resolving]
  - Colitis ischaemic [Unknown]
  - Haematochezia [Unknown]

NARRATIVE: CASE EVENT DATE: 20190118
